FAERS Safety Report 5317826-2 (Version None)
Quarter: 2007Q2

REPORT INFORMATION
  Report Type: 
  Country: None (occurrence: None)
  Receive Date: 20070430
  Receipt Date: 20070423
  Transmission Date: 20071010
  Serious: Yes (Hospitalization)
  Sender: FDA-Public Use
  Company Number: 2007-157745-NL

PATIENT
  Age: 76 Year
  Sex: Female

DRUGS (5)
  1. VECURONIUM BROMIDE [Suspect]
     Dosage: INTRAVENOUS (NOS)
     Route: 042
     Dates: start: 19990913, end: 19990913
  2. SUFENTANIL CITRATE [Suspect]
     Dosage: INTRAVENOUS (NOS)
     Route: 042
     Dates: start: 19990913, end: 19990913
  3. CEFUROXIME [Concomitant]
  4. MIDAZOLAM HYDROCHLORIDE [Concomitant]
  5. PROPOFOL [Concomitant]

REACTIONS (2)
  - CIRCULATORY COLLAPSE [None]
  - PROCEDURAL COMPLICATION [None]
